FAERS Safety Report 9845781 (Version 1)
Quarter: 2014Q1

REPORT INFORMATION
  Report Type: Spontaneous
  Country: US (occurrence: US)
  Receive Date: 20140127
  Receipt Date: 20140127
  Transmission Date: 20141002
  Serious: No
  Sender: FDA-Public Use
  Company Number: US-PFIZER INC-2014021868

PATIENT
  Age: 45 Year
  Sex: Female
  Weight: 68.03 kg

DRUGS (2)
  1. HYDROCORTISONE [Suspect]
     Indication: BLOOD CORTISOL ABNORMAL
     Dosage: 5 MG, UNK
  2. PREDNISONE [Suspect]
     Dosage: UNK

REACTIONS (8)
  - Cushingoid [Unknown]
  - Erythema [Unknown]
  - Weight increased [Unknown]
  - Oral mucosal discolouration [Unknown]
  - Dehydration [Unknown]
  - Skin atrophy [Unknown]
  - Malaise [Unknown]
  - Influenza [Unknown]
